FAERS Safety Report 13954706 (Version 1)
Quarter: 2017Q3

REPORT INFORMATION
  Report Type: Spontaneous
  Country: US (occurrence: US)
  Receive Date: 20170910
  Receipt Date: 20170910
  Transmission Date: 20171128
  Serious: No
  Sender: FDA-Public Use
  Company Number: None

PATIENT
  Age: 56 Year
  Sex: Female
  Weight: 81 kg

DRUGS (4)
  1. ZOLPIDEM TARTRATE ER 12.5MG [Suspect]
     Active Substance: ZOLPIDEM TARTRATE
     Indication: INSOMNIA
     Dosage: ?          QUANTITY:30 TABLET(S);?
     Route: 048
     Dates: start: 20170904
  2. FOLIC ACID. [Concomitant]
     Active Substance: FOLIC ACID
  3. WELLBUTRIN [Concomitant]
     Active Substance: BUPROPION HYDROCHLORIDE
  4. MULTIVIT [Concomitant]
     Active Substance: VITAMINS

REACTIONS (2)
  - Middle insomnia [None]
  - Initial insomnia [None]

NARRATIVE: CASE EVENT DATE: 20170908
